FAERS Safety Report 7192194-2 (Version None)
Quarter: 2010Q4

REPORT INFORMATION
  Report Type: 
  Country: None (occurrence: None)
  Receive Date: 20101223
  Receipt Date: 20101130
  Transmission Date: 20110411
  Serious: Yes (Hospitalization, Other)
  Sender: FDA-Public Use
  Company Number: JP-BAYER-2010-001161

PATIENT
  Age: 82 Year

DRUGS (1)
  1. NEXAVAR [Suspect]
     Route: 048

REACTIONS (3)
  - ENCEPHALOPATHY [None]
  - JAUNDICE [None]
  - PNEUMONIA [None]
